FAERS Safety Report 21280254 (Version 1)
Quarter: 2022Q3

REPORT INFORMATION
  Report Type: Spontaneous
  Country: SE (occurrence: SE)
  Receive Date: 20220901
  Receipt Date: 20220901
  Transmission Date: 20221027
  Serious: Yes (Other)
  Sender: FDA-Public Use
  Company Number: None

PATIENT
  Age: 87 Year
  Sex: Female

DRUGS (6)
  1. JARDIANCE [Suspect]
     Active Substance: EMPAGLIFLOZIN
     Indication: Product used for unknown indication
     Dates: start: 20220208
  2. CETIRIZINE [Concomitant]
     Active Substance: CETIRIZINE HYDROCHLORIDE
     Indication: Product used for unknown indication
     Dates: start: 20220823, end: 20220825
  3. Propyderm 20 % Kr?m [Concomitant]
     Indication: Product used for unknown indication
     Dates: start: 20160824
  4. Eliquis 2,5 mg Filmdragerad tablett [Concomitant]
     Indication: Product used for unknown indication
     Dates: start: 20180425
  5. Selexid 200 mg Filmdragerad tablett [Concomitant]
     Indication: Product used for unknown indication
     Dates: start: 20220821, end: 20220826
  6. BISOPROLOL [Concomitant]
     Active Substance: BISOPROLOL
     Indication: Product used for unknown indication
     Dates: start: 20220822

REACTIONS (1)
  - Epistaxis [Recovered/Resolved]

NARRATIVE: CASE EVENT DATE: 20220101
